FAERS Safety Report 9490431 (Version 1)
Quarter: 2013Q3

REPORT INFORMATION
  Report Type: Spontaneous
  Country: US (occurrence: US)
  Receive Date: 20130830
  Receipt Date: 20130830
  Transmission Date: 20140515
  Serious: Yes (Congenital Anomaly)
  Sender: FDA-Public Use
  Company Number: US-ROCHE-1266988

PATIENT
  Sex: 0

DRUGS (2)
  1. CELLCEPT [Suspect]
     Indication: PRODUCT USED FOR UNKNOWN INDICATION
     Route: 064
     Dates: start: 1999
  2. IMURAN [Concomitant]

REACTIONS (2)
  - Spina bifida [Unknown]
  - Maternal exposure timing unspecified [Unknown]
